FAERS Safety Report 21126824 (Version 1)
Quarter: 2022Q3

REPORT INFORMATION
  Report Type: Spontaneous
  Country: GB (occurrence: None)
  Receive Date: 20220725
  Receipt Date: 20220725
  Transmission Date: 20221026
  Serious: Yes (Other)
  Sender: FDA-Public Use
  Company Number: None

PATIENT
  Age: 45 Year
  Sex: Male
  Weight: 90 kg

DRUGS (1)
  1. DIAZEPAM [Suspect]
     Active Substance: DIAZEPAM
     Indication: Depression
     Dosage: OTHER QUANTITY : 15 TABLET(S);?FREQUENCY : EVERY 4 HOURS;?
     Route: 048
     Dates: start: 20220710, end: 20220715

REACTIONS (4)
  - Gait disturbance [None]
  - Speech disorder [None]
  - Confusional state [None]
  - Malaise [None]

NARRATIVE: CASE EVENT DATE: 20220725
